FAERS Safety Report 8963114 (Version 2)
Quarter: 2013Q1

REPORT INFORMATION
  Report Type: Report from Study
  Country: US (occurrence: US)
  Receive Date: 20121214
  Receipt Date: 20130109
  Transmission Date: 20140127
  Serious: No
  Sender: FDA-Public Use
  Company Number: US-VERTEX PHARMACEUTICALS INC.-2012-026057

PATIENT
  Age: 56 Year
  Sex: Female

DRUGS (4)
  1. VX-950 (TELAPREVIR) [Suspect]
     Indication: HEPATITIS C
     Dosage: UNK
     Route: 048
     Dates: start: 20121114
  2. PEGASYS [Suspect]
     Indication: HEPATITIS C
     Dosage: 180 ?G, UNK
     Dates: start: 20121114
  3. RIBAPAK [Suspect]
     Indication: HEPATITIS C
     Dosage: UNK
     Dates: start: 20121114
  4. METOPROLOL [Concomitant]

REACTIONS (5)
  - Dyspnoea [Unknown]
  - Insomnia [Unknown]
  - Decreased appetite [Not Recovered/Not Resolved]
  - Fatigue [Unknown]
  - Nausea [Not Recovered/Not Resolved]
